FAERS Safety Report 8383214-8 (Version None)
Quarter: 2012Q2

REPORT INFORMATION
  Report Type: 
  Country: None (occurrence: None)
  Receive Date: 20120524
  Receipt Date: 20120515
  Transmission Date: 20120825
  Serious: Yes (Other)
  Sender: FDA-Public Use
  Company Number: IE-JNJFOC-20120506817

PATIENT
  Sex: Male

DRUGS (9)
  1. WARFARIN SODIUM [Concomitant]
  2. BISOPROLOL FUMARATE [Concomitant]
     Dates: start: 20120414
  3. XARELTO [Suspect]
     Route: 048
     Dates: start: 20120413, end: 20120427
  4. BISOPROLOL FUMARATE [Concomitant]
  5. XARELTO [Suspect]
     Route: 048
     Dates: start: 20120413, end: 20120427
  6. PLAVIX [Concomitant]
  7. ISOPTIN [Concomitant]
  8. XARELTO [Suspect]
     Indication: ATRIAL FIBRILLATION
     Route: 048
     Dates: start: 20120501
  9. XARELTO [Suspect]
     Indication: CEREBROVASCULAR ACCIDENT PROPHYLAXIS
     Route: 048
     Dates: start: 20120501

REACTIONS (2)
  - COMPARTMENT SYNDROME [None]
  - HAEMATOMA [None]
